FAERS Safety Report 20392903 (Version 1)
Quarter: 2022Q1

REPORT INFORMATION
  Report Type: Report from Study
  Country: US (occurrence: US)
  Receive Date: 20220128
  Receipt Date: 20220128
  Transmission Date: 20220423
  Serious: Yes (Life-Threatening, Hospitalization, Other)
  Sender: FDA-Public Use
  Company Number: US-PAREXEL-2021-KAM-US003456

PATIENT
  Sex: Male

DRUGS (2)
  1. GLASSIA [Suspect]
     Active Substance: .ALPHA.1-PROTEINASE INHIBITOR HUMAN
     Indication: Alpha-1 antitrypsin deficiency
     Dosage: UNK
     Route: 042
  2. GLASSIA [Suspect]
     Active Substance: .ALPHA.1-PROTEINASE INHIBITOR HUMAN
     Indication: Alpha-1 antitrypsin deficiency
     Dosage: UNK
     Route: 042

REACTIONS (6)
  - Influenza [Unknown]
  - SARS-CoV-2 viraemia [Unknown]
  - Carbon dioxide increased [Unknown]
  - Oedema [Recovered/Resolved]
  - Therapy interrupted [Unknown]
  - Fatigue [Not Recovered/Not Resolved]
